FAERS Safety Report 18338980 (Version 1)
Quarter: 2020Q4

REPORT INFORMATION
  Report Type: Spontaneous
  Country: US (occurrence: US)
  Receive Date: 20201001
  Receipt Date: 20201001
  Transmission Date: 20210113
  Serious: No
  Sender: FDA-Public Use
  Company Number: None

PATIENT
  Age: 43 Year
  Sex: Female

DRUGS (19)
  1. INSULIN LISPRO SLIDING SCALE [Concomitant]
  2. ASCORBIC ACID. [Concomitant]
     Active Substance: ASCORBIC ACID
  3. FLUOXETINE [Concomitant]
     Active Substance: FLUOXETINE HYDROCHLORIDE
  4. PANTOPRAZOLE [Concomitant]
     Active Substance: PANTOPRAZOLE
  5. GABAPENTIN. [Concomitant]
     Active Substance: GABAPENTIN
  6. LURASIDONE [Concomitant]
     Active Substance: LURASIDONE
  7. ANUTRUOTYLINE [Concomitant]
  8. SYMBICORT [Concomitant]
     Active Substance: BUDESONIDE\FORMOTEROL FUMARATE DIHYDRATE
  9. REMDESIVIR. [Suspect]
     Active Substance: REMDESIVIR
     Indication: COVID-19
     Dates: start: 20200907, end: 20200911
  10. BENZONATATE. [Concomitant]
     Active Substance: BENZONATATE
  11. THIAMINE. [Concomitant]
     Active Substance: THIAMINE
  12. TRAZODONE [Concomitant]
     Active Substance: TRAZODONE HYDROCHLORIDE
  13. AZITHROMYCIN ANHYDROUS. [Concomitant]
     Active Substance: AZITHROMYCIN ANHYDROUS
  14. DEXAMETHASONE. [Concomitant]
     Active Substance: DEXAMETHASONE
  15. ENOXAPARIN [Concomitant]
     Active Substance: ENOXAPARIN
  16. ISOPHANE INSULIN [Concomitant]
     Active Substance: INSULIN NOS
  17. CHOLECALCIFEROL [Concomitant]
     Active Substance: CHOLECALCIFEROL
  18. INSULIN GLARFINE [Concomitant]
  19. PREGABALIN. [Concomitant]
     Active Substance: PREGABALIN

REACTIONS (5)
  - Electrocardiogram QT prolonged [None]
  - Sinus bradycardia [None]
  - Heart rate increased [None]
  - Sepsis [None]
  - Hypoxia [None]
